FAERS Safety Report 21968010 (Version 2)
Quarter: 2025Q1

REPORT INFORMATION
  Report Type: Spontaneous
  Country: US (occurrence: US)
  Receive Date: 20230208
  Receipt Date: 20250108
  Transmission Date: 20250409
  Serious: Yes (Other)
  Sender: SANOFI AVENTIS
  Company Number: US-SA-SAC20230208000576

PATIENT
  Age: 48 Year
  Sex: Female
  Weight: 56.36 kg

DRUGS (1)
  1. DUPIXENT [Suspect]
     Active Substance: DUPILUMAB
     Indication: Asthma
     Dosage: 300 MG, QOW
     Route: 058
     Dates: start: 202202

REACTIONS (3)
  - Cellulitis [Unknown]
  - Malaise [Unknown]
  - Asthma [Unknown]

NARRATIVE: CASE EVENT DATE: 20230206
